FAERS Safety Report 5926395-5 (Version None)
Quarter: 2008Q4

REPORT INFORMATION
  Report Type: 
  Country: None (occurrence: None)
  Receive Date: 20081022
  Receipt Date: 20081010
  Transmission Date: 20090506
  Serious: Yes (Other)
  Sender: FDA-Public Use
  Company Number: US-KINGPHARMUSA00001-K200801183

PATIENT

DRUGS (8)
  1. ALTACE [Suspect]
     Dates: start: 20070317
  2. BENDROFLUAZIDE [Concomitant]
     Indication: HYPERTENSION
  3. WARFARIN SODIUM [Concomitant]
     Dosage: 15 MG, UNK
  4. PREDNISOLONE [Concomitant]
     Dosage: 10 MG, UNK
  5. PRAVASTATIN [Concomitant]
  6. CALCIUM CARBONATE [Concomitant]
  7. FUROSEMIDE [Concomitant]
     Dosage: 80 MG, UNK
  8. IBANDRONIC ACID [Concomitant]
     Indication: OSTEOPOROSIS

REACTIONS (5)
  - BLOOD PRESSURE INCREASED [None]
  - CARDIAC DISORDER [None]
  - INTERNATIONAL NORMALISED RATIO ABNORMAL [None]
  - TRANSIENT ISCHAEMIC ATTACK [None]
  - TREMOR [None]
